FAERS Safety Report 8395944-2 (Version None)
Quarter: 2012Q2

REPORT INFORMATION
  Report Type: 
  Country: None (occurrence: None)
  Receive Date: 20120530
  Receipt Date: 20120521
  Transmission Date: 20120825
  Serious: Yes (Hospitalization)
  Sender: FDA-Public Use
  Company Number: FR-BRACCO-000731

PATIENT
  Sex: Female

DRUGS (2)
  1. MULTIHANCE [Suspect]
     Indication: NEOPLASM
     Route: 042
     Dates: start: 20111109, end: 20111109
  2. MULTIHANCE [Suspect]
     Indication: NUCLEAR MAGNETIC RESONANCE IMAGING
     Route: 042
     Dates: start: 20111109, end: 20111109

REACTIONS (4)
  - CONJUNCTIVITIS [None]
  - DYSPNOEA [None]
  - TACHYCARDIA [None]
  - HYPERTENSION [None]
